FAERS Safety Report 12205644 (Version 1)
Quarter: 2016Q1

REPORT INFORMATION
  Report Type: Other
  Country: TR (occurrence: TR)
  Receive Date: 20160323
  Receipt Date: 20160323
  Transmission Date: 20160526
  Serious: Yes (Hospitalization, Other)
  Sender: FDA-Public Use
  Company Number: TR-BAUSCH-BL-2016-006676

PATIENT
  Age: 54 Year
  Sex: Female

DRUGS (3)
  1. SERTRALINE [Concomitant]
     Active Substance: SERTRALINE HYDROCHLORIDE
     Indication: PRODUCT USED FOR UNKNOWN INDICATION
  2. SERTRALINE [Concomitant]
     Active Substance: SERTRALINE HYDROCHLORIDE
  3. TETRABENAZINE. [Suspect]
     Active Substance: TETRABENAZINE
     Indication: SUICIDE ATTEMPT
     Route: 065

REACTIONS (7)
  - Somnolence [Recovered/Resolved]
  - Parkinsonism [Recovered/Resolved]
  - Intentional overdose [Recovered/Resolved]
  - Dizziness [Recovered/Resolved]
  - Suicide attempt [Recovered/Resolved]
  - Vomiting [Recovered/Resolved]
  - Nausea [Recovered/Resolved]
